FAERS Safety Report 11473799 (Version 1)
Quarter: 2015Q3

REPORT INFORMATION
  Report Type: Spontaneous
  Country: US (occurrence: US)
  Receive Date: 20150908
  Receipt Date: 20150908
  Transmission Date: 20151125
  Serious: No
  Sender: FDA-Public Use
  Company Number: US-JAZZ-2014-US-000356

PATIENT
  Age: 55 Year
  Sex: Female
  Weight: 62.13 kg

DRUGS (23)
  1. XYREM [Suspect]
     Active Substance: SODIUM OXYBATE
     Dosage: 2.25 G, SECOND DOSE
     Route: 048
     Dates: end: 20150112
  2. SYNTHROID [Concomitant]
     Active Substance: LEVOTHYROXINE SODIUM
     Indication: HYPOTHYROIDISM
     Dosage: 150 ?G, QD
     Route: 048
  3. COZAAR [Concomitant]
     Active Substance: LOSARTAN POTASSIUM
     Indication: BLOOD PRESSURE INCREASED
     Dosage: UNK
     Route: 048
  4. RESTASIS [Concomitant]
     Active Substance: CYCLOSPORINE
     Indication: SJOGREN^S SYNDROME
     Dosage: UNK
  5. POTASSIUM [Concomitant]
     Active Substance: POTASSIUM
     Indication: BLOOD POTASSIUM DECREASED
     Dosage: UNK
     Route: 048
  6. LYRICA [Suspect]
     Active Substance: PREGABALIN
     Indication: PAIN IN EXTREMITY
     Dosage: UNKNOWN DOSE
     Route: 048
  7. CYMBALTA [Concomitant]
     Active Substance: DULOXETINE HYDROCHLORIDE
     Indication: DEPRESSION
     Dosage: 30 MG, UNK
     Route: 048
  8. MOBIC [Concomitant]
     Active Substance: MELOXICAM
     Indication: RHEUMATOID ARTHRITIS
     Dosage: UNK
     Route: 048
  9. XYREM [Suspect]
     Active Substance: SODIUM OXYBATE
     Indication: CATAPLEXY
     Dosage: 3 G, FIRST DOSE
     Route: 048
     Dates: start: 201312
  10. XYREM [Suspect]
     Active Substance: SODIUM OXYBATE
     Dosage: 3 G, FIRST DOSE
     Route: 048
     Dates: end: 20150112
  11. PREVACID [Concomitant]
     Active Substance: LANSOPRAZOLE
     Indication: HIATUS HERNIA
     Dosage: UNK
     Route: 048
  12. XYREM [Suspect]
     Active Substance: SODIUM OXYBATE
     Indication: NARCOLEPSY
     Dosage: 2.25 G, BID
     Route: 048
     Dates: start: 201311
  13. XYREM [Suspect]
     Active Substance: SODIUM OXYBATE
     Indication: SOMNOLENCE
     Dosage: 2.25 G, SECOND DOSE
     Route: 048
     Dates: start: 201312
  14. XYREM [Suspect]
     Active Substance: SODIUM OXYBATE
     Dosage: 3 G, FIRST DOSE
     Route: 048
  15. FOLIC ACID. [Concomitant]
     Active Substance: FOLIC ACID
     Indication: RHEUMATOID ARTHRITIS
     Dosage: UNK
     Route: 048
  16. PREDNISONE. [Concomitant]
     Active Substance: PREDNISONE
     Indication: RHEUMATOID ARTHRITIS
     Dosage: 5 MG, UNK
     Route: 048
  17. LOSARTAN. [Concomitant]
     Active Substance: LOSARTAN
     Indication: HYPERTENSION
     Dosage: UNK
     Route: 048
  18. XYREM [Suspect]
     Active Substance: SODIUM OXYBATE
     Dosage: 3.25 G, SECOND DOSE
     Route: 048
  19. LIVALO [Concomitant]
     Active Substance: PITAVASTATIN CALCIUM
     Indication: BLOOD CHOLESTEROL INCREASED
     Dosage: UNK
     Route: 048
  20. NUVIGIL [Concomitant]
     Active Substance: ARMODAFINIL
     Indication: NARCOLEPSY
     Dosage: 250 MG, UNK
     Route: 048
  21. METHOTREXATE [Concomitant]
     Active Substance: METHOTREXATE
     Indication: RHEUMATOID ARTHRITIS
     Dosage: UNK, QW
     Route: 042
  22. EVOXAC [Concomitant]
     Active Substance: CEVIMELINE HYDROCHLORIDE
     Indication: SJOGREN^S SYNDROME
     Dosage: 30 MG, TID
     Route: 048
  23. CALCIUM [Concomitant]
     Active Substance: CALCIUM
     Indication: OSTEOPENIA
     Dosage: UNK
     Route: 048

REACTIONS (4)
  - Pain in extremity [Recovered/Resolved]
  - Adrenal insufficiency [Unknown]
  - Muscle spasms [Unknown]
  - Dizziness [Unknown]

NARRATIVE: CASE EVENT DATE: 20140402
